FAERS Safety Report 21983524 (Version 7)
Quarter: 2023Q2

REPORT INFORMATION
  Report Type: Report from Study
  Country: CN (occurrence: None)
  Receive Date: 20230213
  Receipt Date: 20230414
  Transmission Date: 20230722
  Serious: Yes (Hospitalization)
  Sender: FDA-Public Use
  Company Number: CN-ROCHE-3281557

PATIENT
  Age: 74 Year
  Sex: Male
  Weight: 44 kg

DRUGS (43)
  1. ATEZOLIZUMAB [Suspect]
     Active Substance: ATEZOLIZUMAB
     Indication: Lung adenocarcinoma
     Dosage: ON 13/DEC/2022, RECEIVED MOST RECENT DOSE OF ATEZOLIZUMAB (IV) PRIOR TO ADVERSE EVENT (AE) AND SERIO
     Route: 041
     Dates: start: 20210409
  2. CARBOPLATIN [Suspect]
     Active Substance: CARBOPLATIN
     Indication: Lung adenocarcinoma
     Dosage: ON 17/JUN/2021, RECEIVED MOST RECENT DOSE OF 590 MG CARBOPLATIN (IV) PRIOR TO ADVERSE EVENT (AE) AND
     Route: 042
     Dates: start: 20210409
  3. BEVACIZUMAB [Suspect]
     Active Substance: BEVACIZUMAB
     Indication: Lung adenocarcinoma
     Dosage: ON 04/NOV/2022, RECEIVED MOST RECENT DOSE OF 705 MG BEVACIZUMAB (IV) PRIOR TO ADVERSE EVENT (AE) AND
     Route: 042
     Dates: start: 20210409
  4. PEMETREXED [Suspect]
     Active Substance: PEMETREXED
     Indication: Lung adenocarcinoma
     Dosage: ON 13/DEC/2022, RECEIVED MOST RECENT DOSE OF 710 MG PEMETREXED (IV) PRIOR TO ADVERSE EVENT (AE) AND
     Route: 042
     Dates: start: 20210409
  5. NIFEREX [IRON POLYSACCHARIDE COMPLEX] [Concomitant]
     Indication: Anaemia
     Dosage: NEXT DOSE RECEIVED ON 08/FEN/2023, 11/FEB/2023
     Dates: start: 20220104
  6. DEXAMETHASONE ACETATE [Concomitant]
     Active Substance: DEXAMETHASONE ACETATE
     Route: 048
     Dates: start: 20221103, end: 20221105
  7. DEXAMETHASONE ACETATE [Concomitant]
     Active Substance: DEXAMETHASONE ACETATE
     Route: 048
     Dates: start: 20221212, end: 20221214
  8. DEXAMETHASONE ACETATE [Concomitant]
     Active Substance: DEXAMETHASONE ACETATE
     Route: 048
     Dates: start: 20230223, end: 20230225
  9. DEXAMETHASONE ACETATE [Concomitant]
     Active Substance: DEXAMETHASONE ACETATE
     Route: 048
     Dates: start: 20230315, end: 20230317
  10. DIPHENHYDRAMINE [Concomitant]
     Active Substance: DIPHENHYDRAMINE
     Dates: start: 20221104, end: 20221104
  11. DIPHENHYDRAMINE [Concomitant]
     Active Substance: DIPHENHYDRAMINE
     Dates: start: 20221213, end: 20221213
  12. PALONOSETRON HYDROCHLORIDE [Concomitant]
     Active Substance: PALONOSETRON HYDROCHLORIDE
     Dates: start: 20221104, end: 20221104
  13. PALONOSETRON HYDROCHLORIDE [Concomitant]
     Active Substance: PALONOSETRON HYDROCHLORIDE
     Dates: start: 20221213, end: 20221213
  14. IBANDRONATE SODIUM [Concomitant]
     Active Substance: IBANDRONATE SODIUM
     Indication: Metastases to bone
     Dates: start: 20221104, end: 20221104
  15. IBANDRONATE SODIUM [Concomitant]
     Active Substance: IBANDRONATE SODIUM
     Dates: start: 20221213, end: 20221213
  16. ALBUMIN HUMAN [Concomitant]
     Active Substance: ALBUMIN HUMAN
     Indication: Hypoalbuminaemia
     Dates: start: 20221128, end: 20221130
  17. ALBUMIN HUMAN [Concomitant]
     Active Substance: ALBUMIN HUMAN
     Dates: start: 20221213, end: 20221213
  18. ALBUMIN HUMAN [Concomitant]
     Active Substance: ALBUMIN HUMAN
     Dates: start: 20230105, end: 20230117
  19. ALBUMIN HUMAN [Concomitant]
     Active Substance: ALBUMIN HUMAN
     Dates: start: 20230202, end: 20230202
  20. ALBUMIN HUMAN [Concomitant]
     Active Substance: ALBUMIN HUMAN
     Dates: start: 20230204, end: 20230204
  21. ALBUMIN HUMAN [Concomitant]
     Active Substance: ALBUMIN HUMAN
     Dosage: NEXT DOSE RECEIVED ON 15/MAR/2023
     Dates: start: 20230208, end: 20230209
  22. OMEPRAZOLE [Concomitant]
     Active Substance: OMEPRAZOLE
     Indication: Gastrooesophageal reflux disease
     Dosage: ENTERIC CAPSULE
     Dates: start: 20221104, end: 20221111
  23. OMEPRAZOLE [Concomitant]
     Active Substance: OMEPRAZOLE
     Dosage: ENTERIC CAPSULE
     Dates: start: 20221104, end: 20221111
  24. FUROSEMIDE [Concomitant]
     Active Substance: FUROSEMIDE
     Indication: Polyuria
     Dates: start: 20221128, end: 20221130
  25. FUROSEMIDE [Concomitant]
     Active Substance: FUROSEMIDE
     Dates: start: 20230105, end: 20230117
  26. FUROSEMIDE [Concomitant]
     Active Substance: FUROSEMIDE
     Dates: start: 20230208, end: 20230214
  27. MOSAPRIDE CITRATE [Concomitant]
     Active Substance: MOSAPRIDE CITRATE
     Indication: Dyspepsia
     Dates: start: 20230113, end: 20230306
  28. COMPOUND AZINTAMIDE [Concomitant]
     Indication: Dyspepsia
     Dates: start: 20230113, end: 20230306
  29. TORSEMIDE [Concomitant]
     Active Substance: TORSEMIDE
     Dates: start: 20230224, end: 20230224
  30. TORSEMIDE [Concomitant]
     Active Substance: TORSEMIDE
     Dates: start: 20230316, end: 20230316
  31. ERYTHROPOIETIN [Concomitant]
     Active Substance: ERYTHROPOIETIN
     Dates: start: 20230208, end: 20230208
  32. ERYTHROPOIETIN [Concomitant]
     Active Substance: ERYTHROPOIETIN
     Dates: start: 20230316, end: 20230316
  33. METHYLPREDNISOLONE [Concomitant]
     Active Substance: METHYLPREDNISOLONE
     Route: 042
     Dates: start: 20230207, end: 20230214
  34. METHYLPREDNISOLONE [Concomitant]
     Active Substance: METHYLPREDNISOLONE
     Dates: start: 20230215, end: 20230217
  35. METHYLPREDNISOLONE [Concomitant]
     Active Substance: METHYLPREDNISOLONE
     Dates: start: 20230218, end: 20230220
  36. METHYLPREDNISOLONE [Concomitant]
     Active Substance: METHYLPREDNISOLONE
     Dates: start: 20230221, end: 20230222
  37. UBIDECARENONE [Concomitant]
     Active Substance: UBIDECARENONE
  38. METOPROLOL TARTRATE [Concomitant]
     Active Substance: METOPROLOL TARTRATE
     Dates: start: 20230208, end: 20230310
  39. SACUBITRIL\VALSARTAN [Concomitant]
     Active Substance: SACUBITRIL\VALSARTAN
     Dates: start: 20230208, end: 20230310
  40. SPIRONOLACTONE [Concomitant]
     Active Substance: SPIRONOLACTONE
  41. OSELTAMIVIR [Concomitant]
     Active Substance: OSELTAMIVIR
     Route: 048
     Dates: start: 20230324, end: 20230327
  42. ARBIDOL DISPERSIBLE [Concomitant]
     Route: 048
     Dates: start: 20230328, end: 20230329
  43. LACTASIN TABLETS [Concomitant]
     Dates: start: 20230128, end: 20230306

REACTIONS (1)
  - Cardiac failure [Recovering/Resolving]

NARRATIVE: CASE EVENT DATE: 20221124
